FAERS Safety Report 6921163-X (Version None)
Quarter: 2010Q3

REPORT INFORMATION
  Report Type: 
  Country: None (occurrence: None)
  Receive Date: 20100812
  Receipt Date: 20100729
  Transmission Date: 20110219
  Serious: Yes (Death, Other)
  Sender: FDA-Public Use
  Company Number: BR-PFIZER INC-2010095433

PATIENT
  Age: 68 Year
  Sex: Male

DRUGS (1)
  1. VIAGRA [Suspect]
     Dosage: 50 MG, 1X/DAY
     Route: 048
     Dates: start: 20080619

REACTIONS (2)
  - CARDIAC DISORDER [None]
  - HYPERTENSION [None]
